FAERS Safety Report 13775930 (Version 1)
Quarter: 2017Q3

REPORT INFORMATION
  Report Type: Spontaneous
  Country: DE (occurrence: DE)
  Receive Date: 20170720
  Receipt Date: 20170720
  Transmission Date: 20171127
  Serious: Yes (Other)
  Sender: FDA-Public Use
  Company Number: DE-ALLERGAN-1730001US

PATIENT
  Sex: Male
  Weight: 3.13 kg

DRUGS (1)
  1. CITALOPRAM HYDROBROMIDE UNK [Suspect]
     Active Substance: CITALOPRAM HYDROBROMIDE
     Dosage: 30 MG, QD
     Route: 064

REACTIONS (4)
  - Hypothermia [Unknown]
  - Acidosis [Unknown]
  - Neonatal asphyxia [Unknown]
  - Foetal exposure during pregnancy [Unknown]
